FAERS Safety Report 9301396 (Version 2)
Quarter: 2013Q3

REPORT INFORMATION
  Report Type: Spontaneous
  Country: CN (occurrence: None)
  Receive Date: 20121231
  Receipt Date: 20130722
  Transmission Date: 20140515
  Serious: Yes (Hospitalization, Other)
  Sender: FDA-Public Use
  Company Number: JP-2011-11198

PATIENT
  Age: 54 Year
  Sex: Male

DRUGS (6)
  1. CILOSTAZOL [Suspect]
     Indication: DIABETIC NEPHROPATHY
     Route: 048
     Dates: start: 20100903
  2. PROBUCOL [Suspect]
     Indication: DIABETIC NEPHROPATHY
     Route: 048
     Dates: start: 20100903
  3. LOSARTAN POTASSIUM (LOSARTAN POTASSIUM) [Concomitant]
  4. NOVOLIN R (INSULIN HUMAN) [Concomitant]
  5. LANTUS (INSULIN GLARGINE) [Concomitant]
  6. ASPIRIN (ACETYLSALICYLIC ACID) COATED TABLET [Concomitant]

REACTIONS (4)
  - Renal failure [None]
  - Dialysis [None]
  - Blood potassium increased [None]
  - Blood calcium decreased [None]
